FAERS Safety Report 7491710-0 (Version None)
Quarter: 2011Q2

REPORT INFORMATION
  Report Type: 
  Country: None (occurrence: None)
  Receive Date: 20110518
  Receipt Date: 20110518
  Transmission Date: 20111010
  Serious: No
  Sender: FDA-Public Use
  Company Number: None

PATIENT
  Age: 60 Year
  Sex: Female

DRUGS (7)
  1. ALBUTEROL SULFATE AUTOHALER [Concomitant]
  2. REVLIMID [Suspect]
     Indication: MULTIPLE MYELOMA
     Dosage: REVLIMID 25MG  DAILY ORAL
     Route: 048
     Dates: start: 20100526, end: 20100920
  3. LEVOTHYROXINE SODIUM [Concomitant]
  4. LORAZEPAM [Concomitant]
  5. SIMVASTATIN [Concomitant]
  6. DEXAMETHASONE [Concomitant]
  7. ATENOLOL [Concomitant]

REACTIONS (5)
  - MUSCLE SPASMS [None]
  - NEUROPATHY PERIPHERAL [None]
  - FATIGUE [None]
  - BONE PAIN [None]
  - PRURITUS [None]
